FAERS Safety Report 8230277-6 (Version None)
Quarter: 2012Q1

REPORT INFORMATION
  Report Type: 
  Country: None (occurrence: None)
  Receive Date: 20120323
  Receipt Date: 20120314
  Transmission Date: 20120608
  Serious: Yes (Other)
  Sender: FDA-Public Use
  Company Number: CA-JNJFOC-20120309663

PATIENT
  Sex: Female
  Weight: 68 kg

DRUGS (4)
  1. MESALAMINE [Concomitant]
     Route: 065
  2. REMICADE [Suspect]
     Indication: COLITIS ULCERATIVE
     Dosage: WEEK 0
     Route: 042
     Dates: start: 20120228
  3. CORTIFOAM [Concomitant]
     Route: 065
  4. HERBAL REMEDY [Concomitant]
     Route: 065

REACTIONS (2)
  - HAEMORRHAGE URINARY TRACT [None]
  - ABDOMINAL PAIN [None]
